FAERS Safety Report 11322347 (Version 2)
Quarter: 2015Q3

REPORT INFORMATION
  Report Type: Report from Study
  Country: DE (occurrence: None)
  Receive Date: 20150728
  Receipt Date: 20150817
  Transmission Date: 20151125
  Serious: Yes (Hospitalization)
  Sender: FDA-Public Use
  Company Number: DEP_03236_2015

PATIENT
  Age: 60 Year
  Sex: Female

DRUGS (13)
  1. FLUOXETIN [Suspect]
     Active Substance: FLUOXETINE HYDROCHLORIDE
     Indication: PRODUCT USED FOR UNKNOWN INDICATION
     Route: 048
  2. TENSOBON COMP [Suspect]
     Active Substance: CAPTOPRIL\HYDROCHLOROTHIAZIDE
     Indication: PRODUCT USED FOR UNKNOWN INDICATION
     Dosage: (DF ORAL)
     Route: 048
  3. MIANSERIN (MIANSERIN) [Suspect]
     Active Substance: MIANSERIN
     Indication: PRODUCT USED FOR UNKNOWN INDICATION
     Dosage: (DF ORAL)
     Route: 048
  4. CIMETIDINE. [Suspect]
     Active Substance: CIMETIDINE
     Indication: PRODUCT USED FOR UNKNOWN INDICATION
  5. ERGENYL CHRONO [Suspect]
     Active Substance: VALPROIC ACID
     Indication: PRODUCT USED FOR UNKNOWN INDICATION
     Route: 048
  6. VALPRO (VALPRO - VALPROATE SODIUM) [Suspect]
     Active Substance: VALPROATE SODIUM
     Indication: PRODUCT USED FOR UNKNOWN INDICATION
     Route: 048
  7. RAMIPRIL (RAMIPRIL) [Suspect]
     Active Substance: RAMIPRIL
     Indication: PRODUCT USED FOR UNKNOWN INDICATION
     Dosage: (DF ORAL)
     Route: 048
  8. MOLSIHEXAL (MOLSIHEXAL - MOLSIDOMINE) [Suspect]
     Active Substance: MOLSIDOMINE
     Indication: PRODUCT USED FOR UNKNOWN INDICATION
     Dosage: (DF ORAL)
     Route: 048
  9. CHOLAGOGUM (CHOLAGOGUM - CHELIDONIUM MAJUS EXTRACT, CURCUMA LONGA RHIZOME, MENTHA X PIPERITA TINCTURE, SPINACIA ) (NOT SPECIFIED) [Suspect]
     Active Substance: HERBALS
     Indication: PRODUCT USED FOR UNKNOWN INDICATION
     Dosage: (DF ORAL)
     Route: 048
  10. TRANSTEC PRO (TRANSTEC PRO-BUPRENORPHINE )(NOT SPECIFIED) [Suspect]
     Active Substance: BUPRENORPHINE
     Indication: PRODUCT USED FOR UNKNOWN INDICATION
     Dosage: (5 DF
  11. ALCOHOL. [Suspect]
     Active Substance: ALCOHOL
     Indication: PRODUCT USED FOR UNKNOWN INDICATION
     Dosage: (DF ORAL)
     Route: 048
  12. PALEXIA [Suspect]
     Active Substance: TAPENTADOL HYDROCHLORIDE
     Indication: PRODUCT USED FOR UNKNOWN INDICATION
     Route: 048
  13. PERAZINE DIMALONATE (PERAZIN) [Suspect]
     Active Substance: PERAZINE DIMALONATE
     Indication: PRODUCT USED FOR UNKNOWN INDICATION
     Route: 048

REACTIONS (6)
  - Somnolence [None]
  - Metabolic acidosis [None]
  - Intentional overdose [None]
  - Suicidal ideation [None]
  - Hypotension [None]
  - Psychomotor retardation [None]

NARRATIVE: CASE EVENT DATE: 201507
